FAERS Safety Report 22613035 (Version 1)
Quarter: 2023Q2

REPORT INFORMATION
  Report Type: Spontaneous
  Country: US (occurrence: US)
  Receive Date: 20230618
  Receipt Date: 20230618
  Transmission Date: 20230722
  Serious: No
  Sender: FDA-Public Use
  Company Number: US-ELI_LILLY_AND_COMPANY-US202306009835

PATIENT
  Age: 72 Year
  Sex: Male

DRUGS (2)
  1. MOUNJARO [Suspect]
     Active Substance: TIRZEPATIDE
     Indication: Blood glucose increased
     Dosage: 2.5 MG, UNKNOWN
     Route: 058
     Dates: start: 20230608
  2. METFORMIN [Concomitant]
     Active Substance: METFORMIN HYDROCHLORIDE
     Indication: Blood glucose increased
     Dosage: UNK

REACTIONS (3)
  - Hypersomnia [Unknown]
  - Vertigo [Unknown]
  - Dizziness [Unknown]

NARRATIVE: CASE EVENT DATE: 20230609
